FAERS Safety Report 4675891-X (Version None)
Quarter: 2005Q2

REPORT INFORMATION
  Report Type: 
  Country: None (occurrence: None)
  Receive Date: 20050527
  Receipt Date: 20050517
  Transmission Date: 20051028
  Serious: Yes (Other)
  Sender: FDA-Public Use
  Company Number: GB-JNJFOC-20050504257

PATIENT
  Sex: Male
  Weight: 77 kg

DRUGS (11)
  1. REMICADE [Suspect]
     Route: 042
  2. LISINOPRIL [Concomitant]
  3. RANITIDINE [Concomitant]
  4. AMITRIPTYLINE [Concomitant]
  5. PREDNISOLONE [Concomitant]
  6. FOLIC ACID [Concomitant]
  7. METHOTREXATE [Concomitant]
  8. DIDRONEL [Concomitant]
  9. DIHYDROCODEINE [Concomitant]
  10. LACIDIPINE [Concomitant]
  11. LEFLUNOMIDE [Concomitant]

REACTIONS (1)
  - LYMPHOMA [None]
